FAERS Safety Report 11651640 (Version 1)
Quarter: 2015Q4

REPORT INFORMATION
  Report Type: Spontaneous
  Country: US (occurrence: None)
  Receive Date: 20151021
  Receipt Date: 20151021
  Transmission Date: 20160304
  Serious: No
  Sender: FDA-Public Use
  Company Number: None

PATIENT
  Age: 8 Year
  Weight: 34.47 kg

DRUGS (2)
  1. MELATONIN [Concomitant]
     Active Substance: MELATONIN
  2. METHYLPHENIDATE. [Suspect]
     Active Substance: METHYLPHENIDATE
     Indication: ATTENTION DEFICIT/HYPERACTIVITY DISORDER
     Dosage: 1 PILL ONCE DAILY TAKEN BY MOUTH
     Route: 048
     Dates: start: 20150924, end: 20151018

REACTIONS (7)
  - Paranoia [None]
  - Emotional distress [None]
  - Suicidal ideation [None]
  - Agitation [None]
  - Crying [None]
  - Irritability [None]
  - Inappropriate affect [None]

NARRATIVE: CASE EVENT DATE: 20151019
